FAERS Safety Report 9797222 (Version 1)
Quarter: 2014Q1

REPORT INFORMATION
  Report Type: Report from Study
  Country: ES (occurrence: ES)
  Receive Date: 20140106
  Receipt Date: 20140106
  Transmission Date: 20141002
  Serious: Yes (Other)
  Sender: FDA-Public Use
  Company Number: ES-ROCHE-1328268

PATIENT
  Sex: 0

DRUGS (3)
  1. RITUXIMAB [Suspect]
     Indication: MANTLE CELL LYMPHOMA
     Dosage: FIRST CYCLE
     Route: 065
  2. RITUXIMAB [Suspect]
     Dosage: A SINGLE DOSE OF RTX EVERY OTHER 28-DAY CYCLE
     Route: 065
  3. TEMSIROLIMUS [Suspect]
     Indication: MANTLE CELL LYMPHOMA
     Route: 065

REACTIONS (7)
  - Hyperlipidaemia [Unknown]
  - Mucosal inflammation [Unknown]
  - Thrombocytopenia [Unknown]
  - Rash [Unknown]
  - Diarrhoea [Unknown]
  - Hyperglycaemia [Unknown]
  - Pneumonitis [Unknown]
